FAERS Safety Report 24352807 (Version 4)
Quarter: 2025Q2

REPORT INFORMATION
  Report Type: Spontaneous
  Country: FR (occurrence: FR)
  Receive Date: 20240923
  Receipt Date: 20250404
  Transmission Date: 20250716
  Serious: No
  Sender: TOLMAR
  Company Number: FR-TOLMAR, INC.-24FR052119

PATIENT
  Sex: Female

DRUGS (1)
  1. ELIGARD [Suspect]
     Active Substance: LEUPROLIDE ACETATE
     Indication: Occupational exposure to product
     Dates: start: 20240823

REACTIONS (4)
  - Occupational exposure to product [Unknown]
  - Intercepted product preparation error [Unknown]
  - Wrong technique in product usage process [Unknown]
  - Device leakage [Unknown]

NARRATIVE: CASE EVENT DATE: 20240823
